FAERS Safety Report 5031176-3 (Version None)
Quarter: 2006Q2

REPORT INFORMATION
  Report Type: 
  Country: None (occurrence: None)
  Receive Date: 20060505
  Receipt Date: 20050610
  Transmission Date: 20061013
  Serious: Yes (Life-Threatening)
  Sender: FDA-Public Use
  Company Number: S05-USA-00801-01

PATIENT
  Age: 30 Year
  Sex: Female

DRUGS (3)
  1. CERVIDIL(DINNOPROSTONE) [Suspect]
     Indication: LABOUR INDUCTION
     Dates: start: 19980111, end: 19980111
  2. PITOCIN [Suspect]
     Indication: LABOUR INDUCTION
     Dates: start: 19980111, end: 19980111
  3. EPIDURAL [Concomitant]

REACTIONS (2)
  - UTERINE RUPTURE [None]
  - UTERINE SPASM [None]
